FAERS Safety Report 5854987-0 (Version None)
Quarter: 2008Q3

REPORT INFORMATION
  Report Type: 
  Country: None (occurrence: None)
  Receive Date: 20080822
  Receipt Date: 20080428
  Transmission Date: 20090109
  Serious: No
  Sender: FDA-Public Use
  Company Number: US-ABBOTT-08P-163-0449542-00

PATIENT
  Sex: Female
  Weight: 45.4 kg

DRUGS (9)
  1. SYNTHROID [Suspect]
     Indication: HYPOTHYROIDISM
     Route: 048
     Dates: start: 20070101, end: 20070401
  2. SYNTHROID [Suspect]
     Dosage: 1/2 A PILL DAILY-MON, WED + FRI
     Route: 048
     Dates: start: 20070401, end: 20080404
  3. SYNTHROID [Suspect]
     Dosage: 1/2 A PILL DAILY- MON THRU FRI
     Route: 048
     Dates: start: 20080407, end: 20080411
  4. SYNTHROID [Suspect]
     Dosage: 1/2 A PILL DAILY-MON, WED + FRI
     Route: 048
     Dates: start: 20080411
  5. SYNTHROID [Suspect]
     Dosage: 0.05 MCG HALF PILL MON. WED. FRI.
     Route: 048
     Dates: start: 20060401, end: 20070101
  6. ASCORBIC ACID [Concomitant]
     Indication: VITAMIN SUPPLEMENTATION
     Route: 048
  7. VITAMIN E [Concomitant]
     Indication: VITAMIN SUPPLEMENTATION
     Route: 048
  8. SALBUTAMOL [Concomitant]
     Indication: ASTHMA
     Route: 055
  9. ADVIR [Concomitant]
     Indication: ASTHMA
     Route: 055
     Dates: end: 20071001

REACTIONS (3)
  - EPISTAXIS [None]
  - HAEMORRHOIDAL HAEMORRHAGE [None]
  - PNEUMONIA [None]
